FAERS Safety Report 10559992 (Version 3)
Quarter: 2014Q4

REPORT INFORMATION
  Report Type: Spontaneous
  Country: JP (occurrence: JP)
  Receive Date: 20141103
  Receipt Date: 20141126
  Transmission Date: 20150529
  Serious: Yes (Hospitalization)
  Sender: FDA-Public Use
  Company Number: PHJP2014JP001272

PATIENT
  Age: 88 Year
  Sex: Male

DRUGS (9)
  1. LYRICA [Suspect]
     Active Substance: PREGABALIN
     Indication: POST HERPETIC NEURALGIA
     Dosage: 525 MG (75 MG, 7 CAPSULES), QD
     Route: 065
     Dates: start: 20140627
  2. NEUROTROPIN [Suspect]
     Active Substance: NEUROTROPIN
     Indication: PRODUCT USED FOR UNKNOWN INDICATION
     Dosage: UNK
     Route: 065
     Dates: start: 20140801, end: 20140818
  3. GOREISAN [Suspect]
     Active Substance: HERBALS
     Dosage: UNK
     Route: 065
     Dates: start: 20140828, end: 20140907
  4. LYRICA [Suspect]
     Active Substance: PREGABALIN
     Dosage: 300 MG (75 MG, 4 CAPSULES), QD
     Route: 065
     Dates: end: 20140818
  5. GOREISAN [Suspect]
     Active Substance: HERBALS
     Indication: PRODUCT USED FOR UNKNOWN INDICATION
     Dosage: UNK
     Route: 065
     Dates: start: 20140801, end: 20140818
  6. TEGRETOL [Suspect]
     Active Substance: CARBAMAZEPINE
     Indication: PRODUCT USED FOR UNKNOWN INDICATION
     Dosage: UNK
     Route: 065
     Dates: start: 20140801, end: 20140818
  7. LYRICA [Suspect]
     Active Substance: PREGABALIN
     Dosage: 600 MG (75 MG, 8 CAPSULES), QD
     Route: 065
     Dates: start: 20140701
  8. LYRICA [Suspect]
     Active Substance: PREGABALIN
     Dosage: 150 MG, QD
     Route: 065
     Dates: start: 20140828, end: 20140907
  9. NEUROTROPIN [Suspect]
     Active Substance: NEUROTROPIN
     Dosage: UNK
     Route: 065
     Dates: start: 20140828, end: 20140907

REACTIONS (2)
  - Platelet count decreased [Not Recovered/Not Resolved]
  - Haemorrhage [Unknown]

NARRATIVE: CASE EVENT DATE: 20140801
